FAERS Safety Report 12435108 (Version 1)
Quarter: 2016Q2

REPORT INFORMATION
  Report Type: Spontaneous
  Country: US (occurrence: US)
  Receive Date: 20160603
  Receipt Date: 20160603
  Transmission Date: 20160815
  Serious: Yes (Disabling)
  Sender: FDA-Public Use
  Company Number: US-ROCHE-1594982

PATIENT
  Sex: Female

DRUGS (4)
  1. XELODA [Suspect]
     Active Substance: CAPECITABINE
     Indication: NEOPLASM MALIGNANT
     Dosage: 3 TABS IN THE MORNING, 2 TABS IN THE NIGHT
     Route: 048
     Dates: start: 20150404
  2. XELODA [Suspect]
     Active Substance: CAPECITABINE
     Dosage: 3 TABS AM, 2 TABS PM
     Route: 048
     Dates: start: 201504
  3. XELODA [Suspect]
     Active Substance: CAPECITABINE
     Route: 048
     Dates: start: 20150526
  4. XELODA [Suspect]
     Active Substance: CAPECITABINE
     Route: 048
     Dates: start: 20150526

REACTIONS (4)
  - Tremor [Unknown]
  - Memory impairment [Unknown]
  - Abdominal pain upper [Unknown]
  - Gait disturbance [Unknown]
